FAERS Safety Report 5394331-9 (Version None)
Quarter: 2007Q3

REPORT INFORMATION
  Report Type: 
  Country: None (occurrence: None)
  Receive Date: 20070723
  Receipt Date: 20070614
  Transmission Date: 20080115
  Serious: No
  Sender: FDA-Public Use
  Company Number: A0652837A

PATIENT
  Age: 55 Year
  Sex: Male

DRUGS (11)
  1. AVANDIA [Suspect]
     Dosage: 4MG TWICE PER DAY
     Route: 048
     Dates: start: 20040101, end: 20070601
  2. PROGRAF [Concomitant]
  3. CELLCEPT [Concomitant]
  4. PROTONIX [Concomitant]
  5. AMARYL [Concomitant]
  6. ASPIRIN [Concomitant]
  7. MAGNESIUM OXIDE [Concomitant]
  8. LABETALOL HCL [Concomitant]
  9. NORVASC [Concomitant]
  10. FUROSEMIDE [Concomitant]
  11. PROCRIT [Concomitant]

REACTIONS (1)
  - FLUID RETENTION [None]
